FAERS Safety Report 13530457 (Version 2)
Quarter: 2017Q2

REPORT INFORMATION
  Report Type: Spontaneous
  Country: US (occurrence: US)
  Receive Date: 20170509
  Receipt Date: 20170510
  Transmission Date: 20170830
  Serious: No
  Sender: FDA-Public Use
  Company Number: US-009507513-1704USA007232

PATIENT
  Age: 25 Year
  Sex: Female

DRUGS (2)
  1. PROQUAD [Suspect]
     Active Substance: MEASLES VIRUS STRAIN ENDERS^ ATTENUATED EDMONSTON LIVE ANTIGEN\MUMPS VIRUS STRAIN B LEVEL JERYL LYNN LIVE ANTIGEN\RUBELLA VIRUS STRAIN WISTAR RA 27/3 LIVE ANTIGEN\VARICELLA-ZOSTER VIRUS STRAIN OKA/MERCK LIVE ANTIGEN
     Indication: DRUG ADMINISTRATION ERROR
     Route: 061
     Dates: start: 20170414, end: 20170414
  2. STERILE DILUENT [Suspect]
     Active Substance: WATER
     Indication: DRUG ADMINISTRATION ERROR
     Dosage: UNK, ONCE
     Route: 061
     Dates: start: 20170414, end: 20170414

REACTIONS (3)
  - Ocular hyperaemia [Unknown]
  - Expired product administered [Unknown]
  - Accidental exposure to product [Unknown]

NARRATIVE: CASE EVENT DATE: 20170414
